FAERS Safety Report 5385108-9 (Version None)
Quarter: 2007Q3

REPORT INFORMATION
  Report Type: 
  Country: None (occurrence: None)
  Receive Date: 20070706
  Receipt Date: 20070706
  Transmission Date: 20080115
  Serious: Yes (Other)
  Sender: FDA-Public Use
  Company Number: None

PATIENT
  Age: 55 Year
  Sex: Female
  Weight: 58.514 kg

DRUGS (1)
  1. FOSAMAX [Suspect]
     Indication: OSTEOPOROSIS
     Dosage: 1 A WEEK PO
     Route: 048
     Dates: start: 19970801, end: 20070323

REACTIONS (2)
  - OESOPHAGEAL ULCER [None]
  - OSTEONECROSIS [None]
